FAERS Safety Report 24802261 (Version 1)
Quarter: 2025Q1

REPORT INFORMATION
  Report Type: Spontaneous
  Country: US (occurrence: None)
  Receive Date: 20250103
  Receipt Date: 20250103
  Transmission Date: 20250408
  Serious: No
  Sender: REDHILL BIOPHARMA INC.
  Company Number: US-ARIS GLOBAL-RDH202402-000008

PATIENT
  Age: 71 Year
  Sex: Male

DRUGS (6)
  1. AEMCOLO [Suspect]
     Active Substance: RIFAMYCIN
     Indication: Osteomyelitis
     Route: 065
     Dates: start: 2023
  2. AEMCOLO [Suspect]
     Active Substance: RIFAMYCIN
     Indication: Intervertebral discitis
  3. AEMCOLO [Suspect]
     Active Substance: RIFAMYCIN
     Indication: Extradural abscess
  4. AEMCOLO [Suspect]
     Active Substance: RIFAMYCIN
     Indication: Spinal laminectomy
  5. AZITHROMYCIN [Concomitant]
     Active Substance: AZITHROMYCIN
     Indication: Mycobacterium avium complex infection
     Route: 065
     Dates: start: 2023
  6. ETHAMBUTOL [Concomitant]
     Active Substance: ETHAMBUTOL HYDROCHLORIDE
     Indication: Mycobacterium avium complex infection
     Route: 065
     Dates: start: 2023

REACTIONS (2)
  - Drug eruption [Unknown]
  - Off label use [Unknown]

NARRATIVE: CASE EVENT DATE: 20230101
